FAERS Safety Report 7742534-8 (Version None)
Quarter: 2011Q3

REPORT INFORMATION
  Report Type: 
  Country: None (occurrence: None)
  Receive Date: 20110902
  Receipt Date: 20110823
  Transmission Date: 20111222
  Serious: Yes (Other)
  Sender: FDA-Public Use
  Company Number: 2011SP040123

PATIENT

DRUGS (2)
  1. PEGINTERFERON ALFA-2B [Suspect]
     Indication: HEPATITIS C
     Dosage: 55 MCG;QW
  2. RIBAVIRIN [Suspect]
     Indication: HEPATITIS C
     Dosage: 400 MG;QD

REACTIONS (4)
  - ANAEMIA [None]
  - HEPATITIS CHOLESTATIC [None]
  - RIGHT VENTRICULAR FAILURE [None]
  - FIBROSIS [None]
